FAERS Safety Report 10026234 (Version 2)
Quarter: 2014Q1

REPORT INFORMATION
  Report Type: Spontaneous
  Country: US (occurrence: US)
  Receive Date: 20140320
  Receipt Date: 20140320
  Transmission Date: 20141002
  Serious: No
  Sender: FDA-Public Use
  Company Number: US-ALLERGAN-1316085US

PATIENT
  Age: 70 Year
  Sex: Female

DRUGS (3)
  1. LUMIGAN 0.01% [Suspect]
     Indication: GLAUCOMA
     Dosage: 2 GTT, QHS
     Route: 047
  2. LUMIGAN 0.01% [Suspect]
     Dosage: UNK
  3. COMBIGAN[R] [Suspect]
     Indication: GLAUCOMA
     Dosage: 2 GTT, BID
     Route: 047
     Dates: start: 2012

REACTIONS (8)
  - Lacrimation increased [Recovering/Resolving]
  - Eye discharge [Recovering/Resolving]
  - Eye discharge [Recovering/Resolving]
  - Eye swelling [Recovering/Resolving]
  - Eye discharge [Recovering/Resolving]
  - Eye discharge [Recovering/Resolving]
  - Drug hypersensitivity [Recovering/Resolving]
  - Scleral hyperaemia [Recovering/Resolving]
